FAERS Safety Report 13930739 (Version 1)
Quarter: 2017Q3

REPORT INFORMATION
  Report Type: Spontaneous
  Country: US (occurrence: US)
  Receive Date: 20170901
  Receipt Date: 20170901
  Transmission Date: 20171127
  Serious: No
  Sender: FDA-Public Use
  Company Number: PHEH2017US027585

PATIENT
  Age: 64 Year
  Sex: Male

DRUGS (1)
  1. VOTRIENT [Suspect]
     Active Substance: PAZOPANIB HYDROCHLORIDE
     Indication: PLASMA CELL MYELOMA
     Dosage: 800 MG, QD
     Route: 048
     Dates: start: 20170804

REACTIONS (3)
  - Pain in extremity [Unknown]
  - Back pain [Unknown]
  - Dry skin [Unknown]

NARRATIVE: CASE EVENT DATE: 20170809
